FAERS Safety Report 21293735 (Version 3)
Quarter: 2023Q1

REPORT INFORMATION
  Report Type: Spontaneous
  Country: US (occurrence: None)
  Receive Date: 20220905
  Receipt Date: 20230302
  Transmission Date: 20230418
  Serious: Yes (Other)
  Sender: FDA-Public Use
  Company Number: 2022A289359

PATIENT
  Age: 76 Year
  Sex: Female
  Weight: 54 kg

DRUGS (4)
  1. SYMBICORT [Suspect]
     Active Substance: BUDESONIDE\FORMOTEROL FUMARATE DIHYDRATE
     Indication: Chronic obstructive pulmonary disease
     Dosage: 160/4.5 MCG, TWO PUFFS TWICE A DAY
     Route: 055
  2. SYMBICORT [Suspect]
     Active Substance: BUDESONIDE\FORMOTEROL FUMARATE DIHYDRATE
     Indication: Chronic obstructive pulmonary disease
     Dosage: 160/4.5 MCG, TWO PUFFS TWICE A DAY
     Route: 055
  3. AMOXICILLIN [Concomitant]
     Active Substance: AMOXICILLIN
  4. CLAVULANATE POTASSIUM [Concomitant]
     Active Substance: CLAVULANATE POTASSIUM
     Dosage: 500 MG/125 MG , 10 DAYS

REACTIONS (17)
  - Spinal fracture [Not Recovered/Not Resolved]
  - Asthenia [Unknown]
  - Secretion discharge [Unknown]
  - Feeling abnormal [Unknown]
  - Condition aggravated [Unknown]
  - Dyspnoea [Unknown]
  - Sputum discoloured [Not Recovered/Not Resolved]
  - Breath sounds abnormal [Unknown]
  - Illness [Not Recovered/Not Resolved]
  - Paranoia [Not Recovered/Not Resolved]
  - Fatigue [Unknown]
  - Weight decreased [Unknown]
  - Infection [Not Recovered/Not Resolved]
  - Cough [Not Recovered/Not Resolved]
  - Device use issue [Unknown]
  - Drug ineffective [Unknown]
  - Device malfunction [Unknown]

NARRATIVE: CASE EVENT DATE: 20210101
